FAERS Safety Report 12978075 (Version 1)
Quarter: 2016Q4

REPORT INFORMATION
  Report Type: Spontaneous
  Country: IE (occurrence: US)
  Receive Date: 20161126
  Receipt Date: 20161126
  Transmission Date: 20170207
  Serious: Yes (Life-Threatening, Other)
  Sender: FDA-Public Use
  Company Number: None

PATIENT
  Age: 41 Year
  Sex: Female
  Weight: 65 kg

DRUGS (2)
  1. METHYLPHENIDATE. [Concomitant]
     Active Substance: METHYLPHENIDATE
  2. ETALOPRO 5MG ESCITALOPRAM OXALATE CLONMEL HEALTHCARE [Suspect]
     Active Substance: ESCITALOPRAM OXALATE
     Indication: ANXIETY
     Dosage: ?          QUANTITY:1 TABLET(S);?
     Route: 048
     Dates: start: 20161125, end: 20161125

REACTIONS (16)
  - Respiratory rate increased [None]
  - Paraesthesia [None]
  - Vomiting [None]
  - Multi-organ disorder [None]
  - Dysarthria [None]
  - Heart rate increased [None]
  - Blood pressure increased [None]
  - Muscular weakness [None]
  - Musculoskeletal discomfort [None]
  - Dizziness [None]
  - Musculoskeletal stiffness [None]
  - Vision blurred [None]
  - Syncope [None]
  - Nausea [None]
  - Feeling drunk [None]
  - Tremor [None]

NARRATIVE: CASE EVENT DATE: 20161125
